FAERS Safety Report 18004316 (Version 1)
Quarter: 2020Q3

REPORT INFORMATION
  Report Type: Spontaneous
  Country: US (occurrence: US)
  Receive Date: 20200709
  Receipt Date: 20200709
  Transmission Date: 20201103
  Serious: Yes (Life-Threatening, Hospitalization, Disabling)
  Sender: FDA-Public Use
  Company Number: None

PATIENT
  Age: 66 Year
  Sex: Female
  Weight: 68.04 kg

DRUGS (7)
  1. LISINOPRIL. [Concomitant]
     Active Substance: LISINOPRIL
  2. ASPIRIN. [Concomitant]
     Active Substance: ASPIRIN
  3. ACETAMINOPHEN/CODEN [Concomitant]
  4. METFORMIN [Suspect]
     Active Substance: METFORMIN HYDROCHLORIDE
     Indication: DIABETES MELLITUS
     Dosage: ?          QUANTITY:1 DF DOSAGE FORM;?
     Route: 048
     Dates: end: 20200622
  5. JANUIA [Concomitant]
  6. ROSUVASTIN [Concomitant]
     Active Substance: ROSUVASTATIN
  7. CLIMEPRIDE [Concomitant]

REACTIONS (2)
  - Renal cell carcinoma [None]
  - Recalled product administered [None]

NARRATIVE: CASE EVENT DATE: 20200213
